FAERS Safety Report 7943212-2 (Version None)
Quarter: 2011Q4

REPORT INFORMATION
  Report Type: 
  Country: None (occurrence: None)
  Receive Date: 20111128
  Receipt Date: 20111121
  Transmission Date: 20120403
  Serious: Yes (Hospitalization)
  Sender: FDA-Public Use
  Company Number: PHEH2011US009865

PATIENT
  Age: 63 Year
  Sex: Male
  Weight: 89.342 kg

DRUGS (5)
  1. BORTEZOMIB [Concomitant]
     Indication: MULTIPLE MYELOMA
     Dosage: 3.3 MG (DAYS 1, 4, 8, 11, EVERY 28 DAYS)
     Route: 042
     Dates: start: 20110627, end: 20110718
  2. ANTIBIOTICS [Concomitant]
  3. ZOLEDRONIC ACID [Suspect]
     Indication: MULTIPLE MYELOMA
     Dosage: 4 MG Q28 DAYS- 4 CYCLES
     Route: 042
     Dates: start: 20110401, end: 20110627
  4. DEXAMETHASONE [Concomitant]
     Indication: MULTIPLE MYELOMA
     Dosage: 20 MG (DAYS 1,2,4,.5,8,9,11,12)
     Route: 048
     Dates: start: 20110627, end: 20110718
  5. CYCLOPHOSPHAMIDE [Concomitant]
     Indication: MULTIPLE MYELOMA
     Dosage: 650 MG (DAYS 1, 8, 15, 22)
     Route: 048
     Dates: start: 20110627, end: 20110718

REACTIONS (6)
  - SEPSIS [None]
  - ASTHENIA [None]
  - SERRATIA SEPSIS [None]
  - SYNCOPE [None]
  - DEHYDRATION [None]
  - HYPOTENSION [None]
